FAERS Safety Report 8918245 (Version 4)
Quarter: 2013Q2

REPORT INFORMATION
  Report Type: Spontaneous
  Country: US (occurrence: US)
  Receive Date: 20121120
  Receipt Date: 20130604
  Transmission Date: 20140414
  Serious: Yes (Hospitalization, Other)
  Sender: FDA-Public Use
  Company Number: US-009507513-1211USA007606

PATIENT
  Sex: Female

DRUGS (6)
  1. FOSAMAX [Suspect]
     Indication: OSTEOPENIA
     Dosage: 70 MG, UNK
     Route: 048
     Dates: start: 20020425, end: 20080626
  2. ALENDRONATE SODIUM [Suspect]
     Indication: OSTEOPOROSIS
     Dosage: 70 MG, UNK
     Route: 048
     Dates: start: 20080626, end: 20101101
  3. ALENDRONATE SODIUM [Suspect]
     Indication: OSTEOPENIA
     Dosage: 20 MG, QD
     Route: 048
     Dates: start: 20101101
  4. CALCIUM (UNSPECIFIED) (+) VITAMIN D (UNSPECIFIED) [Concomitant]
     Dosage: UNK
     Route: 048
     Dates: start: 2000
  5. VITAMINS (UNSPECIFIED) [Concomitant]
     Dosage: UNK
     Dates: start: 2000
  6. ASCORBIC ACID [Concomitant]
     Dosage: 500 MG, QD
     Route: 048
     Dates: start: 2000

REACTIONS (22)
  - Femur fracture [Unknown]
  - Hip arthroplasty [Unknown]
  - Open reduction of fracture [Unknown]
  - Cardiac operation [Unknown]
  - Fall [Unknown]
  - Coronary artery bypass [Unknown]
  - Cardiac murmur [Unknown]
  - Anaemia vitamin B12 deficiency [Unknown]
  - Vitamin D deficiency [Unknown]
  - Aortic valve replacement [Unknown]
  - Urinary tract infection [Unknown]
  - Constipation [Recovered/Resolved]
  - Bursitis [Unknown]
  - Coronary artery disease [Unknown]
  - Varicose vein operation [Unknown]
  - Low turnover osteopathy [Unknown]
  - Osteoarthritis [Unknown]
  - Inappropriate schedule of drug administration [Unknown]
  - Spondylolisthesis [Unknown]
  - Hypertension [Unknown]
  - Pain in extremity [Unknown]
  - Gastrooesophageal reflux disease [Unknown]
